FAERS Safety Report 10089006 (Version 1)
Quarter: 2014Q2

REPORT INFORMATION
  Report Type: Report from Study
  Country: US (occurrence: US)
  Receive Date: 20140421
  Receipt Date: 20140421
  Transmission Date: 20141212
  Serious: Yes (Death)
  Sender: FDA-Public Use
  Company Number: PHEH2014US007776

PATIENT
  Age: 80 Year
  Sex: Male

DRUGS (1)
  1. ZOMETA [Suspect]
     Indication: ILL-DEFINED DISORDER
     Dosage: 3 MG, ONCE EVERY 4 WEEK
     Dates: start: 20130629

REACTIONS (1)
  - Death [Fatal]
